FAERS Safety Report 22240764 (Version 2)
Quarter: 2023Q2

REPORT INFORMATION
  Report Type: Spontaneous
  Country: CO (occurrence: CO)
  Receive Date: 20230421
  Receipt Date: 20230426
  Transmission Date: 20230721
  Serious: Yes (Other)
  Sender: FDA-Public Use
  Company Number: CO-APIL-2311934US

PATIENT
  Sex: Female
  Weight: 52 kg

DRUGS (3)
  1. BOTOX [Suspect]
     Active Substance: ONABOTULINUMTOXINA
     Indication: Mesotherapy
     Dosage: 40 UNITS, SINGLE
     Route: 023
     Dates: start: 20230412, end: 20230412
  2. BOTOX [Suspect]
     Active Substance: ONABOTULINUMTOXINA
     Indication: Hyperhidrosis
  3. BOTOX [Suspect]
     Active Substance: ONABOTULINUMTOXINA
     Indication: Skin disorder

REACTIONS (8)
  - Skin necrosis [Not Recovered/Not Resolved]
  - Epidermolysis [Not Recovered/Not Resolved]
  - Application site scab [Not Recovered/Not Resolved]
  - Off label use [Unknown]
  - Multiple use of single-use product [Unknown]
  - Erythema [Not Recovered/Not Resolved]
  - Injection site pain [Not Recovered/Not Resolved]
  - Urticaria [Not Recovered/Not Resolved]

NARRATIVE: CASE EVENT DATE: 20230412
